FAERS Safety Report 9224245 (Version 1)
Quarter: 2013Q1

REPORT INFORMATION
  Report Type: Spontaneous
  Country: US (occurrence: US)
  Receive Date: 20120914
  Receipt Date: 20120914
  Transmission Date: 20140127
  Serious: Yes (Other)
  Sender: FDA-Public Use
  Company Number: JPI-P-019699

PATIENT
  Age: 42 Year
  Sex: Male
  Weight: 105.69 kg

DRUGS (10)
  1. XYREM (500 MG/ML SOLUTION)(SODIUM OXYBATE) [Suspect]
     Indication: CATAPLEXY
     Dosage: 2 DOSES OF 1.5 GM TAKEN NIGHTLY/AT BEDTIME.
     Route: 048
     Dates: start: 20030224
  2. METHYLPHENIDATE HYDROCHLORIDE [Concomitant]
  3. METHSCOPOLAMINE BROMIDE [Concomitant]
  4. ESOMEPRAZOLE MAGNESIUM [Concomitant]
  5. EZETIMIBE/SIMVASTATIN [Concomitant]
  6. FLUTICASONE PROPIONATE [Concomitant]
  7. QUETIAPINE FUMARATE [Concomitant]
  8. ALBUTEROL SULFATE/IPRATROPIUM BROMIDE [Concomitant]
  9. LOSARTAN POTASSIUM [Concomitant]
  10. TESTOSTERONE [Concomitant]

REACTIONS (4)
  - Fall [None]
  - Head injury [None]
  - Concussion [None]
  - Blood pressure increased [None]
